FAERS Safety Report 9467704 (Version 1)
Quarter: 2013Q3

REPORT INFORMATION
  Report Type: Spontaneous
  Country: US (occurrence: None)
  Receive Date: 20130819
  Receipt Date: 20130819
  Transmission Date: 20140515
  Serious: Yes (Disabling)
  Sender: FDA-Public Use
  Company Number: None

PATIENT
  Age: 30 Year
  Sex: 0

DRUGS (2)
  1. FLUOXETINE 20MG [Suspect]
     Dosage: ONCE DAILY  TAKEN BY MOUTH
     Route: 048
  2. ADDERALL XR 30MG [Suspect]

REACTIONS (3)
  - Insomnia [None]
  - Feeling abnormal [None]
  - Drug interaction [None]
